FAERS Safety Report 16416197 (Version 1)
Quarter: 2019Q2

REPORT INFORMATION
  Report Type: Spontaneous
  Country: US (occurrence: US)
  Receive Date: 20190611
  Receipt Date: 20190611
  Transmission Date: 20190711
  Serious: No
  Sender: FDA-Public Use
  Company Number: US-AMNEAL PHARMACEUTICALS-2018AMN00857

PATIENT
  Age: 77 Year
  Sex: Female
  Weight: 81.63 kg

DRUGS (2)
  1. PRIMIDONE. [Suspect]
     Active Substance: PRIMIDONE
     Indication: TREMOR
     Dosage: 1 TABLETS, 1X/DAY
     Route: 048
     Dates: start: 20181106, end: 20181106
  2. ZOFRAN [Suspect]
     Active Substance: ONDANSETRON HYDROCHLORIDE
     Indication: VOMITING

REACTIONS (7)
  - Nausea [Recovered/Resolved]
  - Photosensitivity reaction [Recovered/Resolved]
  - Feeling abnormal [Recovered/Resolved]
  - Treatment noncompliance [Unknown]
  - Dizziness [Recovered/Resolved]
  - Headache [Recovered/Resolved]
  - Vomiting [Recovered/Resolved]

NARRATIVE: CASE EVENT DATE: 20181106
